FAERS Safety Report 9432160 (Version 1)
Quarter: 2013Q3

REPORT INFORMATION
  Report Type: Spontaneous
  Country: US (occurrence: US)
  Receive Date: 20130731
  Receipt Date: 20130731
  Transmission Date: 20140515
  Serious: Yes (Death, Other)
  Sender: FDA-Public Use
  Company Number: US-TEVA-421748USA

PATIENT
  Age: 33 Year
  Sex: Male

DRUGS (2)
  1. BUPRENORPHINE [Suspect]
  2. COCAINE [Suspect]

REACTIONS (1)
  - Death [Fatal]
